FAERS Safety Report 4608527-4 (Version None)
Quarter: 2005Q1

REPORT INFORMATION
  Report Type: 
  Country: None (occurrence: None)
  Receive Date: 20050311
  Receipt Date: 20050311
  Transmission Date: 20050727
  Serious: Yes (Hospitalization)
  Sender: FDA-Public Use
  Company Number: None

PATIENT
  Age: 73 Year
  Sex: Male

DRUGS (1)
  1. NEUPOGEN [Suspect]
     Indication: NEUTROPHIL COUNT ABNORMAL
     Dosage: 480 MCG  DAILY SUBCUTANEOUS
     Route: 058
     Dates: start: 20050131, end: 20050202

REACTIONS (13)
  - ABDOMINAL PAIN [None]
  - ASTHENIA [None]
  - BACK PAIN [None]
  - CHEST PAIN [None]
  - FLANK PAIN [None]
  - HEADACHE [None]
  - MALAISE [None]
  - NAUSEA [None]
  - ORAL INTAKE REDUCED [None]
  - PARAESTHESIA [None]
  - PELVIC PAIN [None]
  - PRODUCTIVE COUGH [None]
  - RESPIRATORY TRACT INFECTION VIRAL [None]
